FAERS Safety Report 13912923 (Version 1)
Quarter: 2017Q3

REPORT INFORMATION
  Report Type: Spontaneous
  Country: US (occurrence: US)
  Receive Date: 20170828
  Receipt Date: 20170828
  Transmission Date: 20171127
  Serious: No
  Sender: FDA-Public Use
  Company Number: US-SUNOVION-2017SUN003661

PATIENT

DRUGS (3)
  1. LORAZEPAM. [Suspect]
     Active Substance: LORAZEPAM
  2. LATUDA [Suspect]
     Active Substance: LURASIDONE HYDROCHLORIDE
     Dosage: 100 MG, UNK
     Route: 048
  3. TRAZODONE HYDROCHLORIDE. [Suspect]
     Active Substance: TRAZODONE HYDROCHLORIDE
     Dosage: 150 MG, UNK
     Route: 048

REACTIONS (6)
  - Hyperhidrosis [Unknown]
  - Vomiting [Unknown]
  - Chest discomfort [Unknown]
  - Crying [Unknown]
  - Middle insomnia [Unknown]
  - Agitation [Unknown]
